FAERS Safety Report 21963101 (Version 1)
Quarter: 2023Q1

REPORT INFORMATION
  Report Type: Report from Study
  Country: US (occurrence: US)
  Receive Date: 20230207
  Receipt Date: 20230207
  Transmission Date: 20230417
  Serious: No
  Sender: FDA-Public Use
  Company Number: US-AMRYT PHARMACEUTICALS DAC-AEGR006216

PATIENT
  Sex: Female

DRUGS (31)
  1. METRELEPTIN [Suspect]
     Active Substance: METRELEPTIN
     Indication: Acquired generalised lipodystrophy
     Dosage: 2.5 MILLIGRAM, QD
     Dates: start: 20210118, end: 20210122
  2. METRELEPTIN [Suspect]
     Active Substance: METRELEPTIN
     Dosage: 3.75 MILLIGRAM, QD
     Dates: start: 20210123, end: 20210209
  3. METRELEPTIN [Suspect]
     Active Substance: METRELEPTIN
     Dosage: 5.0 MILLIGRAM, QD
     Dates: start: 20210210, end: 20220221
  4. METRELEPTIN [Suspect]
     Active Substance: METRELEPTIN
     Dosage: 3.75 MILLIGRAM, QD
     Dates: start: 20220228, end: 20220228
  5. METRELEPTIN [Suspect]
     Active Substance: METRELEPTIN
     Dosage: 5 MILLIGRAM, QD
     Dates: start: 20220301, end: 20220314
  6. METRELEPTIN [Suspect]
     Active Substance: METRELEPTIN
     Dosage: 3.75 MILLIGRAM, QD
     Dates: start: 20220315
  7. METFORMIN [Concomitant]
     Active Substance: METFORMIN HYDROCHLORIDE
     Indication: Diabetes mellitus
     Dosage: 1000 MILLIGRAM, BID
     Route: 048
     Dates: start: 2018, end: 20210701
  8. METFORMIN [Concomitant]
     Active Substance: METFORMIN HYDROCHLORIDE
     Dosage: 1000 MILLIGRAM, BID
     Route: 048
     Dates: start: 20210707
  9. FENOFIBRATE [Concomitant]
     Active Substance: FENOFIBRATE
     Indication: Hypertriglyceridaemia
     Dosage: 160 MILLIGRAM, QD
     Dates: start: 201912
  10. ERGOCALCIFEROL [Concomitant]
     Active Substance: ERGOCALCIFEROL
     Indication: Vitamin D deficiency
     Dosage: 50000 INTERNATIONAL UNIT, Q WEEKLY
     Route: 048
     Dates: start: 20210219
  11. SPIRONOLACTONE [Concomitant]
     Active Substance: SPIRONOLACTONE
     Indication: Hirsutism
     Dosage: 25 MILLIGRAM, QD
     Route: 048
     Dates: start: 20211015
  12. HUMULIN R [Concomitant]
     Active Substance: INSULIN HUMAN
     Indication: Diabetes mellitus
     Dosage: 100 IU INTERNATIONAL UNIT(S), Q AM
     Route: 058
     Dates: start: 20220411, end: 20220509
  13. HUMULIN R [Concomitant]
     Active Substance: INSULIN HUMAN
     Dosage: 40 IU INTERNATIONAL UNIT(S), QD WITH LUNCH
     Route: 058
     Dates: start: 20220411, end: 20220509
  14. HUMULIN R [Concomitant]
     Active Substance: INSULIN HUMAN
     Dosage: 100 IU INTERNATIONAL UNIT(S), QD WITH LUNCH
     Route: 058
     Dates: start: 20220510
  15. HUMULIN R [Concomitant]
     Active Substance: INSULIN HUMAN
     Dosage: 120 MILLIGRAM, Q AM
     Route: 058
     Dates: start: 20220510
  16. INSULIN LISPRO [Concomitant]
     Active Substance: INSULIN LISPRO
     Indication: Diabetes mellitus
     Dosage: 20 IU INTERNATIONAL UNIT(S), TID
     Route: 060
     Dates: start: 20200924, end: 20210122
  17. INSULIN LISPRO [Concomitant]
     Active Substance: INSULIN LISPRO
     Dosage: 30 IU INTERNATIONAL UNIT(S), TID
     Route: 060
     Dates: start: 20210123, end: 20210206
  18. INSULIN LISPRO [Concomitant]
     Active Substance: INSULIN LISPRO
     Dosage: 25 IU INTERNATIONAL UNIT(S), TI
     Route: 060
     Dates: start: 20210207, end: 20210219
  19. INSULIN LISPRO [Concomitant]
     Active Substance: INSULIN LISPRO
     Dosage: 6 IU INTERNATIONAL UNIT(S), QID
     Route: 060
     Dates: start: 20220225, end: 20220301
  20. INSULIN LISPRO [Concomitant]
     Active Substance: INSULIN LISPRO
     Dosage: 9 IU INTERNATIONAL UNIT(S), QID
     Route: 060
     Dates: start: 20220301, end: 20220304
  21. INSULIN LISPRO [Concomitant]
     Active Substance: INSULIN LISPRO
     Dosage: 14 IU INTERNATIONAL UNIT(S), BID
     Route: 060
     Dates: start: 20220518
  22. PREDNISONE [Concomitant]
     Active Substance: PREDNISONE
     Indication: Hepatitis acute
     Dosage: 40 MILLIGRAM, QD
     Route: 048
     Dates: start: 20220222, end: 20220228
  23. PREDNISONE [Concomitant]
     Active Substance: PREDNISONE
     Dosage: 60 MILLIGRAM, QD
     Route: 048
     Dates: start: 20220309, end: 20220310
  24. PREDNISONE [Concomitant]
     Active Substance: PREDNISONE
     Dosage: 40 MILLIGRAM, QD
     Route: 048
     Dates: start: 20220411, end: 20220502
  25. PREDNISONE [Concomitant]
     Active Substance: PREDNISONE
     Dosage: 30 MILLIGRAM, QD
     Route: 048
     Dates: start: 20220503, end: 20220509
  26. PREDNISONE [Concomitant]
     Active Substance: PREDNISONE
     Dosage: 20 MILLIGRAM, QD
     Route: 048
     Dates: start: 20220510
  27. CELLCEPT [Concomitant]
     Active Substance: MYCOPHENOLATE MOFETIL
     Indication: Hepatitis acute
     Dosage: 1000 MILLIGRAM, BID
     Route: 048
     Dates: start: 20220307, end: 20220310
  28. CELLCEPT [Concomitant]
     Active Substance: MYCOPHENOLATE MOFETIL
     Dosage: 2000 MILLIGRAM, BID
     Route: 048
     Dates: start: 20220311, end: 20220404
  29. CELLCEPT [Concomitant]
     Active Substance: MYCOPHENOLATE MOFETIL
     Dosage: 1000 MILLIGRAM, BID
     Route: 048
     Dates: start: 20220405
  30. ZITHROMAX [Concomitant]
     Active Substance: AZITHROMYCIN DIHYDRATE
     Indication: Cough
     Dosage: 250 MILLIGRAM, BID
     Route: 048
     Dates: start: 20221127, end: 20221206
  31. DOXYCYCLINE [Concomitant]
     Active Substance: DOXYCYCLINE
     Indication: Bronchitis
     Dosage: 100 MILLIGRAM, BID
     Route: 048
     Dates: start: 20221127, end: 20221206

REACTIONS (1)
  - Respiratory syncytial virus infection [Not Recovered/Not Resolved]

NARRATIVE: CASE EVENT DATE: 20220101
